FAERS Safety Report 13975081 (Version 2)
Quarter: 2017Q3

REPORT INFORMATION
  Report Type: Spontaneous
  Country: CA (occurrence: CA)
  Receive Date: 20170915
  Receipt Date: 20170929
  Transmission Date: 20171128
  Serious: Yes (Hospitalization, Other)
  Sender: FDA-Public Use
  Company Number: CA-ROCHE-1993158

PATIENT
  Sex: Male
  Weight: 93 kg

DRUGS (4)
  1. RITUXAN [Suspect]
     Active Substance: RITUXIMAB
     Indication: RHEUMATOID ARTHRITIS
     Dosage: DOSE FOR INFUSION # 3
     Route: 042
     Dates: start: 20170912
  2. DIPHENHYDRAMINE HCL [Concomitant]
     Active Substance: DIPHENHYDRAMINE HYDROCHLORIDE
     Indication: PREMEDICATION
     Route: 048
  3. METHOTREXATE. [Concomitant]
     Active Substance: METHOTREXATE
     Route: 048
  4. ACETAMINOPHEN. [Concomitant]
     Active Substance: ACETAMINOPHEN
     Indication: PREMEDICATION
     Route: 048

REACTIONS (4)
  - Decreased appetite [Unknown]
  - Gallbladder disorder [Unknown]
  - Sepsis [Unknown]
  - Weight decreased [Unknown]
